FAERS Safety Report 4509489-0 (Version None)
Quarter: 2004Q4

REPORT INFORMATION
  Report Type: 
  Country: None (occurrence: None)
  Receive Date: 20041119
  Receipt Date: 20041109
  Transmission Date: 20050328
  Serious: Yes (Other)
  Sender: FDA-Public Use
  Company Number: 2004090896

PATIENT
  Sex: Male

DRUGS (2)
  1. ZYVOX [Suspect]
     Indication: STAPHYLOCOCCAL INFECTION
     Dosage: SEE IMAGE
     Route: 048
     Dates: start: 20041030, end: 20041031
  2. ZYVOX [Suspect]
     Indication: STAPHYLOCOCCAL INFECTION
     Dosage: SEE IMAGE
     Route: 048
     Dates: start: 20041101, end: 20041103

REACTIONS (3)
  - DIARRHOEA [None]
  - HAEMATOCHEZIA [None]
  - RECTAL HAEMORRHAGE [None]
